FAERS Safety Report 6696684-8 (Version None)
Quarter: 2010Q2

REPORT INFORMATION
  Report Type: 
  Country: None (occurrence: None)
  Receive Date: 20100426
  Receipt Date: 20100415
  Transmission Date: 20101027
  Serious: Yes (Hospitalization)
  Sender: FDA-Public Use
  Company Number: US-ASTRAZENECA-2010SE13917

PATIENT
  Age: 32 Year
  Sex: Female
  Weight: 122.5 kg

DRUGS (6)
  1. SEROQUEL XR [Suspect]
     Indication: DEPRESSION
     Route: 048
     Dates: start: 20100216, end: 20100218
  2. LOTENSIN [Concomitant]
     Indication: HYPERTENSION
     Dates: start: 20100216
  3. LASIX [Concomitant]
  4. OTHER ANTI-HYPERTENSIVES [Concomitant]
  5. ATENOLOL [Concomitant]
     Indication: HYPERTENSION
     Dates: start: 20090417, end: 20090608
  6. CLONIDINE [Concomitant]
     Indication: HYPERTENSION
     Dates: start: 20070423

REACTIONS (2)
  - HYPOTENSION [None]
  - MENTAL STATUS CHANGES [None]
